FAERS Safety Report 18795596 (Version 2)
Quarter: 2021Q1

REPORT INFORMATION
  Report Type: Report from Study
  Country: None (occurrence: BE)
  Receive Date: 20210124
  Receipt Date: 20210315
  Transmission Date: 20210419
  Serious: No
  Sender: FDA-Public Use
  Company Number: BE-ABBVIE-18S-013-2407707-00

PATIENT
  Age: 65 Year
  Sex: Female

DRUGS (20)
  1. DUODOPA [Suspect]
     Active Substance: CARBIDOPA\LEVODOPA
     Dosage: DOSES CONTINUOUSLY MONITORED AND ADAPTED
     Route: 050
     Dates: start: 20141031, end: 20180116
  2. DUODOPA [Suspect]
     Active Substance: CARBIDOPA\LEVODOPA
     Dosage: MD=3.2ML?CD=3ML(AM)?3.3ML(PM)/HR DURING 16HRS?ED=1.5ML
     Route: 050
     Dates: start: 20181003, end: 20181024
  3. DUODOPA [Suspect]
     Active Substance: CARBIDOPA\LEVODOPA
     Dosage: MD=3.6ML, CD=3.5ML/HR DURING 16HRS, ED=1.8ML
     Route: 050
     Dates: start: 20190515, end: 20191016
  4. DUODOPA [Suspect]
     Active Substance: CARBIDOPA\LEVODOPA
     Dosage: MD=3.8ML, CD=3.5ML/HR DURING 16HRS, ED=1.8ML
     Route: 050
     Dates: start: 20191016, end: 20200605
  5. DUODOPA [Suspect]
     Active Substance: CARBIDOPA\LEVODOPA
     Dosage: MD= 3.8 ML, CD= 3.3 ML/HR DURING 16HRS, ED= 2.2 ML
     Route: 050
     Dates: start: 202101, end: 20210204
  6. DUODOPA [Suspect]
     Active Substance: CARBIDOPA\LEVODOPA
     Dosage: MD=3.8ML, CD=3.3ML/HR DURING 16HRS, ED=1.8ML
     Route: 050
     Dates: start: 20200605, end: 20200701
  7. DUODOPA [Suspect]
     Active Substance: CARBIDOPA\LEVODOPA
     Dosage: MD=3.8ML, CD=3.3ML/HR DURING 16HRS, ED=2.2ML?20 MG/ML 5 MG/ML
     Route: 050
     Dates: start: 20200701, end: 202101
  8. DUODOPA [Suspect]
     Active Substance: CARBIDOPA\LEVODOPA
     Dosage: MD= 3.8 ML, CD= 3.4 ML/HR DURING 16HRS, ED= 2.4 ML
     Route: 050
     Dates: start: 20210204, end: 20210225
  9. SINEMET [Concomitant]
     Active Substance: CARBIDOPA\LEVODOPA
     Indication: PARKINSON^S DISEASE
     Dosage: FORM STRENGTH: 25MG/100MG; EITHER SINEMET/2 PROLOPA HBS AT BEDTIME+1 AT NIGHT IF NEEDED
     Route: 048
  10. DUODOPA [Suspect]
     Active Substance: CARBIDOPA\LEVODOPA
     Dosage: MD=3.2ML?CD=3ML(AM)?3.3ML(PM)/HR DURING 16HRS?ED=1.5ML
     Route: 050
     Dates: start: 20181024, end: 20190515
  11. DUODOPA [Suspect]
     Active Substance: CARBIDOPA\LEVODOPA
     Dosage: MD=3.6ML?CD=3.3ML/HR DURING 16HRS?ED=1.8ML
     Route: 050
     Dates: start: 20181024, end: 20190515
  12. LYSANXIA [Concomitant]
     Active Substance: PRAZEPAM
     Indication: PRODUCT USED FOR UNKNOWN INDICATION
     Dosage: UNIT DOSE: 3 ? 4 DROPS
  13. DUODOPA [Suspect]
     Active Substance: CARBIDOPA\LEVODOPA
     Dosage: MD=3ML CD=3ML/HR DURING 16HRS ED=1.8 ML
     Route: 050
     Dates: start: 20180718, end: 20180821
  14. DUODOPA [Suspect]
     Active Substance: CARBIDOPA\LEVODOPA
     Dosage: MD= 3.8 ML, CD= 3.3 ML/HR DURING 16HRS, ED= 2.5 ML
     Route: 050
     Dates: start: 20210225
  15. SINEMET [Concomitant]
     Active Substance: CARBIDOPA\LEVODOPA
     Dosage: FORM STRENGTH:25MG/100MG; DAILY DOSE:AT BEDTIME+1 UNIT IF NEEDED DURING THE NIGHT
  16. DUODOPA [Suspect]
     Active Substance: CARBIDOPA\LEVODOPA
     Dosage: MD: 3ML; CD: 2.9ML/H FOR 16HRS; ED: 1.8ML
     Route: 050
     Dates: start: 20180709, end: 20180718
  17. DUODOPA [Suspect]
     Active Substance: CARBIDOPA\LEVODOPA
     Indication: PARKINSON^S DISEASE
     Dosage: MD: 2.5ML; CD: 2.2ML/H FOR 16HRS; ED: 1.5ML
     Route: 050
     Dates: start: 20141027, end: 20141031
  18. DUODOPA [Suspect]
     Active Substance: CARBIDOPA\LEVODOPA
     Dosage: MD: 3ML; CD: 2.6ML/H FOR 16HRS; ED: 1.8ML
     Route: 050
     Dates: start: 20180116, end: 20180709
  19. DUODOPA [Suspect]
     Active Substance: CARBIDOPA\LEVODOPA
     Dosage: MD= 3.2ML, CD= 3.1ML/HR DURING 16HRS, ED= 1.8ML
     Route: 050
     Dates: start: 20180821, end: 20181003
  20. PROLOPA DISP [Concomitant]
     Indication: PARKINSON^S DISEASE
     Dosage: ONLY WHEN NECESSARY, (3 X 1/2 TAB DURING THE DAY AND 3 X 1/2 TAB AT?NIGHT).
     Route: 048

REACTIONS (49)
  - Pain in extremity [Unknown]
  - Bladder pain [Not Recovered/Not Resolved]
  - Muscle spasms [Not Recovered/Not Resolved]
  - Muscle spasms [Recovered/Resolved]
  - Malaise [Not Recovered/Not Resolved]
  - Tremor [Unknown]
  - Abdominal pain [Not Recovered/Not Resolved]
  - Hypophagia [Unknown]
  - Asthenia [Unknown]
  - Mobility decreased [Recovered/Resolved]
  - Mobility decreased [Unknown]
  - Pain [Not Recovered/Not Resolved]
  - Stoma site hypergranulation [Not Recovered/Not Resolved]
  - Freezing phenomenon [Recovering/Resolving]
  - Feeding disorder [Recovered/Resolved]
  - Speech disorder [Unknown]
  - Speech disorder [Recovering/Resolving]
  - Propulsive gait [Unknown]
  - Wrong technique in device usage process [Recovered/Resolved]
  - Anxiety [Not Recovered/Not Resolved]
  - Drug ineffective [Not Recovered/Not Resolved]
  - Hypoaesthesia [Unknown]
  - Paraesthesia [Unknown]
  - Throat tightness [Unknown]
  - Parkinsonian gait [Not Recovered/Not Resolved]
  - Malaise [Unknown]
  - Therapeutic product effect incomplete [Not Recovered/Not Resolved]
  - Stoma site pain [Not Recovered/Not Resolved]
  - Polyneuropathy [Unknown]
  - Gait disturbance [Unknown]
  - Bladder discomfort [Unknown]
  - Gastrointestinal pain [Unknown]
  - Oropharyngeal pain [Unknown]
  - Stoma site discharge [Not Recovered/Not Resolved]
  - Extra dose administered [Unknown]
  - Gastrooesophageal reflux disease [Unknown]
  - Musculoskeletal stiffness [Not Recovered/Not Resolved]
  - Cystitis [Unknown]
  - Dyskinesia [Not Recovered/Not Resolved]
  - Stoma site infection [Unknown]
  - Muscle rigidity [Recovered/Resolved]
  - Device issue [Recovered/Resolved]
  - Pain [Unknown]
  - Dysphagia [Unknown]
  - Pain in extremity [Not Recovered/Not Resolved]
  - Device issue [Recovering/Resolving]
  - Salivary hypersecretion [Unknown]
  - Freezing phenomenon [Not Recovered/Not Resolved]
  - Muscle rigidity [Not Recovered/Not Resolved]

NARRATIVE: CASE EVENT DATE: 20170701
